FAERS Safety Report 20266623 (Version 1)
Quarter: 2021Q4

REPORT INFORMATION
  Report Type: Spontaneous
  Country: US (occurrence: None)
  Receive Date: 20211231
  Receipt Date: 20211231
  Transmission Date: 20220304
  Serious: Yes (Other)
  Sender: FDA-Public Use
  Company Number: 2021A908694

PATIENT

DRUGS (1)
  1. PRILOSEC OTC [Suspect]
     Active Substance: OMEPRAZOLE MAGNESIUM
     Dosage: UNK
     Route: 048
     Dates: start: 2014, end: 201912

REACTIONS (6)
  - Pancreatic carcinoma metastatic [Unknown]
  - Rebound acid hypersecretion [Unknown]
  - Hyperchlorhydria [Unknown]
  - Pain [Unknown]
  - Rebound effect [Unknown]
  - Drug dependence [Unknown]
